FAERS Safety Report 15208528 (Version 1)
Quarter: 2018Q3

REPORT INFORMATION
  Report Type: Spontaneous
  Country: US (occurrence: US)
  Receive Date: 20180727
  Receipt Date: 20180727
  Transmission Date: 20181010
  Serious: No
  Sender: FDA-Public Use
  Company Number: US-ALKERMES INC.-ALK-2018-002528

PATIENT
  Age: 25 Year
  Sex: Female
  Weight: 100.68 kg

DRUGS (1)
  1. VIVITROL [Suspect]
     Active Substance: NALTREXONE
     Indication: DRUG DEPENDENCE
     Dosage: 380 MG, QMO
     Route: 030
     Dates: start: 201701, end: 20180521

REACTIONS (2)
  - Human chorionic gonadotropin negative [Unknown]
  - Pregnancy [Unknown]

NARRATIVE: CASE EVENT DATE: 2018
